FAERS Safety Report 17264141 (Version 2)
Quarter: 2020Q1

REPORT INFORMATION
  Report Type: Report from Study
  Country: US (occurrence: US)
  Receive Date: 20200113
  Receipt Date: 20200130
  Transmission Date: 20200409
  Serious: Yes (Death, Other)
  Sender: FDA-Public Use
  Company Number: US-ACTELION-A-NJ2020-200208

PATIENT
  Sex: Male

DRUGS (2)
  1. TRACLEER [Suspect]
     Active Substance: BOSENTAN
     Indication: PULMONARY HYPERTENSION
     Dosage: 16 MG, BID
     Route: 048
     Dates: start: 20190308, end: 20191201
  2. SILDENAFIL. [Concomitant]
     Active Substance: SILDENAFIL
     Dosage: 8 MG, Q8H

REACTIONS (6)
  - Post procedural complication [Unknown]
  - Right ventricular failure [Fatal]
  - Cardiac arrest [Fatal]
  - Pulmonary hypertensive crisis [Fatal]
  - Surgery [Unknown]
  - Sepsis [Fatal]
